FAERS Safety Report 16678749 (Version 1)
Quarter: 2019Q3

REPORT INFORMATION
  Report Type: Spontaneous
  Country: US (occurrence: US)
  Receive Date: 20190622
  Receipt Date: 20190622
  Transmission Date: 20191004
  Serious: No
  Sender: FDA-Public Use
  Company Number: None

PATIENT
  Age: 50 Year
  Sex: Male

DRUGS (1)
  1. ENTECAVIR 0.5MG TAB (X30) [Suspect]
     Active Substance: ENTECAVIR
     Indication: PLASMA CELL MYELOMA
     Dates: start: 20190530

REACTIONS (3)
  - Rash [None]
  - Dry skin [None]
  - Rash papular [None]

NARRATIVE: CASE EVENT DATE: 20190622
